FAERS Safety Report 24862134 (Version 2)
Quarter: 2025Q1

REPORT INFORMATION
  Report Type: Spontaneous
  Country: US (occurrence: US)
  Receive Date: 20250120
  Receipt Date: 20250124
  Transmission Date: 20250409
  Serious: Yes (Hospitalization)
  Sender: ROCHE
  Company Number: US-ROCHE-10000171859

PATIENT
  Age: 54 Year
  Sex: Male

DRUGS (7)
  1. GAVRETO [Suspect]
     Active Substance: PRALSETINIB
     Indication: Non-small cell lung cancer
     Route: 065
  2. GAVRETO [Suspect]
     Active Substance: PRALSETINIB
     Route: 065
  3. GAVRETO [Suspect]
     Active Substance: PRALSETINIB
     Route: 065
  4. GAVRETO [Suspect]
     Active Substance: PRALSETINIB
     Route: 065
  5. GAVRETO [Suspect]
     Active Substance: PRALSETINIB
     Route: 065
  6. VALGANCICLOVIR [Suspect]
     Active Substance: VALGANCICLOVIR
     Indication: Cytomegalovirus viraemia
     Route: 065
  7. AMLODIPINE [Concomitant]
     Active Substance: AMLODIPINE BESYLATE
     Indication: Hypertension

REACTIONS (12)
  - Cytomegalovirus viraemia [Recovered/Resolved]
  - Hepatitis B reactivation [Recovered/Resolved with Sequelae]
  - Weight decreased [Recovered/Resolved]
  - Chills [Recovered/Resolved]
  - Platelet count increased [Recovering/Resolving]
  - Taste disorder [Recovering/Resolving]
  - Fatigue [Recovering/Resolving]
  - Asthenia [Recovered/Resolved with Sequelae]
  - Myalgia [Recovered/Resolved with Sequelae]
  - Blood creatine phosphokinase increased [Recovered/Resolved]
  - Haemoglobin decreased [Recovered/Resolved]
  - Off label use [Unknown]
